FAERS Safety Report 10155928 (Version 1)
Quarter: 2014Q2

REPORT INFORMATION
  Report Type: Spontaneous
  Country: DE (occurrence: DE)
  Receive Date: 20140506
  Receipt Date: 20140506
  Transmission Date: 20141212
  Serious: Yes (Congenital Anomaly)
  Sender: FDA-Public Use
  Company Number: DE-MYLANLABS-2014S1009514

PATIENT
  Age: 1 Day
  Sex: Male
  Weight: 3.76 kg

DRUGS (3)
  1. LAMOTRIGINE [Suspect]
     Indication: EPILEPSY
     Dosage: 300 [MG/D ]/ (BIS 150 MG/D)
     Route: 064
     Dates: start: 20130109, end: 20131010
  2. FOLIC ACID [Concomitant]
     Indication: PROPHYLAXIS OF NEURAL TUBE DEFECT
     Dosage: 0.8 [MG/D ]
     Route: 064
     Dates: start: 20130209, end: 20131010
  3. CEFUROXIME [Concomitant]
     Indication: BACTERIAL INFECTION
     Dosage: 1000 [MG/D ]
     Route: 064

REACTIONS (2)
  - Cataract congenital [Recovered/Resolved with Sequelae]
  - Exposure during pregnancy [Recovered/Resolved with Sequelae]
